FAERS Safety Report 9473867 (Version 2)
Quarter: 2013Q3

REPORT INFORMATION
  Report Type: Spontaneous
  Country: US (occurrence: US)
  Receive Date: 20130823
  Receipt Date: 20130823
  Transmission Date: 20140515
  Serious: No
  Sender: FDA-Public Use
  Company Number: US-BRISTOL-MYERS SQUIBB COMPANY-17069360

PATIENT
  Age: 28 Year
  Sex: Male
  Weight: 87.07 kg

DRUGS (1)
  1. SPRYCEL (CML) TABS 100 MG [Suspect]
     Indication: CHRONIC MYELOID LEUKAEMIA
     Dosage: REDUCED TO 70MG
     Route: 048
     Dates: start: 20120821

REACTIONS (19)
  - Fatigue [Unknown]
  - Nausea [Unknown]
  - Paraesthesia [Unknown]
  - Initial insomnia [Unknown]
  - Staphylococcal infection [Unknown]
  - Fall [Unknown]
  - Memory impairment [Unknown]
  - Dizziness [Unknown]
  - Disturbance in attention [Unknown]
  - Feeling cold [Unknown]
  - Constipation [Unknown]
  - Diarrhoea [Unknown]
  - Decreased appetite [Unknown]
  - Sleep disorder [Unknown]
  - Confusional state [Unknown]
  - Feeling abnormal [Unknown]
  - Nasal congestion [Unknown]
  - Productive cough [Unknown]
  - Hypoaesthesia [Unknown]
